FAERS Safety Report 9013536 (Version 1)
Quarter: 2013Q1

REPORT INFORMATION
  Report Type: Spontaneous
  Country: US (occurrence: None)
  Receive Date: 20130107
  Receipt Date: 20130107
  Transmission Date: 20140127
  Serious: Yes (Other)
  Sender: FDA-Public Use
  Company Number: None

PATIENT
  Sex: Female

DRUGS (1)
  1. REBIF [Suspect]
     Indication: MULTIPLE SCLEROSIS
     Dosage: 44 MCG 3XWEEKLY SQ
     Route: 058
     Dates: start: 20101022, end: 20130102

REACTIONS (2)
  - Injection site cellulitis [None]
  - No therapeutic response [None]
